FAERS Safety Report 8797776 (Version 1)
Quarter: 2012Q4

REPORT INFORMATION
  Report Type: 
  Country: US (occurrence: US)
  Receive Date: 20120920
  Receipt Date: 20120920
  Transmission Date: 20130627
  Serious: Yes (Other)
  Sender: FDA-Public Use
  Company Number: US-SANOFI-AVENTIS-2012SA068145

PATIENT
  Age: 57 Year
  Sex: Female

DRUGS (2)
  1. AMBIEN CR [Suspect]
     Indication: SLEEP DISORDER
     Route: 048
     Dates: end: 2012
  2. AMBIEN CR [Suspect]
     Indication: CHRONIC PAIN
     Route: 048
     Dates: end: 2012

REACTIONS (5)
  - Somnambulism [Unknown]
  - Road traffic accident [Unknown]
  - Tooth disorder [Unknown]
  - Visual impairment [Unknown]
  - Impaired driving ability [Unknown]
